FAERS Safety Report 9676696 (Version 1)
Quarter: 2013Q4

REPORT INFORMATION
  Report Type: Spontaneous
  Country: US (occurrence: US)
  Receive Date: 20131107
  Receipt Date: 20131107
  Transmission Date: 20140711
  Serious: No
  Sender: FDA-Public Use
  Company Number: US-009507513-1310USA014722

PATIENT
  Sex: Female

DRUGS (1)
  1. REMERON [Suspect]
     Indication: ANXIETY
     Route: 048

REACTIONS (4)
  - Anxiety [Unknown]
  - Drug effect decreased [Unknown]
  - Dizziness [Unknown]
  - Off label use [Unknown]
